FAERS Safety Report 9767073 (Version 1)
Quarter: 2013Q4

REPORT INFORMATION
  Report Type: Spontaneous
  Country: US (occurrence: None)
  Receive Date: 20131216
  Receipt Date: 20131216
  Transmission Date: 20140711
  Serious: Yes (Hospitalization)
  Sender: FDA-Public Use
  Company Number: None

PATIENT
  Age: 11 Year
  Sex: Female
  Weight: 40.4 kg

DRUGS (3)
  1. DAUNORUBICIN [Suspect]
     Dates: end: 20131126
  2. PREDNISONE [Suspect]
     Dates: end: 20131126
  3. VINCRISTINE SULFATE [Suspect]
     Dates: end: 20131126

REACTIONS (21)
  - Hyperglycaemia [None]
  - Tumour lysis syndrome [None]
  - Hepatic failure [None]
  - Renal failure [None]
  - Haemodialysis [None]
  - Encephalopathy [None]
  - White blood cell count increased [None]
  - Stomatitis [None]
  - Respiratory distress [None]
  - Dermatitis bullous [None]
  - Lip swelling [None]
  - Lip haemorrhage [None]
  - Lip ulceration [None]
  - Swollen tongue [None]
  - Tongue haemorrhage [None]
  - Tongue ulceration [None]
  - Mouth ulceration [None]
  - Mouth haemorrhage [None]
  - Oedema mouth [None]
  - Liver injury [None]
  - Pancreatitis [None]
